FAERS Safety Report 9369758 (Version 2)
Quarter: 2013Q3

REPORT INFORMATION
  Report Type: Spontaneous
  Country: SE (occurrence: SE)
  Receive Date: 20130626
  Receipt Date: 20130710
  Transmission Date: 20140515
  Serious: Yes (Other)
  Sender: FDA-Public Use
  Company Number: SE-ASTELLAS-2013EU005206

PATIENT
  Sex: Female

DRUGS (2)
  1. BETMIGA [Suspect]
     Indication: STRESS URINARY INCONTINENCE
     Dosage: 50 MG, UID/QD
     Route: 065
  2. BETMIGA [Suspect]
     Dosage: UNK
     Route: 065
     Dates: start: 20130617

REACTIONS (6)
  - Chest discomfort [Recovered/Resolved]
  - Palpitations [Recovered/Resolved]
  - Headache [Recovered/Resolved]
  - Extrasystoles [Recovered/Resolved]
  - Dizziness [Recovered/Resolved]
  - Malaise [Recovered/Resolved]
